FAERS Safety Report 7569152-9 (Version None)
Quarter: 2011Q2

REPORT INFORMATION
  Report Type: 
  Country: None (occurrence: None)
  Receive Date: 20110623
  Receipt Date: 20110608
  Transmission Date: 20111010
  Serious: Yes (Other)
  Sender: FDA-Public Use
  Company Number: PHHO2011CM01872

PATIENT
  Sex: Male

DRUGS (2)
  1. AMLODIPINE BESYLATE/VALSARTAN [Suspect]
     Indication: HYPERTENSION
  2. AMLODIPINE [Suspect]
     Indication: HYPERTENSION
     Dosage: UNK

REACTIONS (3)
  - HOT FLUSH [None]
  - ASTHENIA [None]
  - ERECTILE DYSFUNCTION [None]
